FAERS Safety Report 25330890 (Version 1)
Quarter: 2025Q2

REPORT INFORMATION
  Report Type: Spontaneous
  Country: CA (occurrence: CA)
  Receive Date: 20250519
  Receipt Date: 20250519
  Transmission Date: 20250717
  Serious: Yes (Other)
  Sender: MYLAN
  Company Number: CA-MYLANLABS-2025M1041276

PATIENT
  Age: 43 Year
  Sex: Male

DRUGS (8)
  1. VALPROIC ACID [Interacting]
     Active Substance: VALPROIC ACID
     Indication: Product used for unknown indication
  2. VALPROIC ACID [Interacting]
     Active Substance: VALPROIC ACID
     Route: 065
  3. VALPROIC ACID [Interacting]
     Active Substance: VALPROIC ACID
     Route: 065
  4. VALPROIC ACID [Interacting]
     Active Substance: VALPROIC ACID
  5. MEROPENEM [Interacting]
     Active Substance: MEROPENEM
     Indication: Product used for unknown indication
  6. MEROPENEM [Interacting]
     Active Substance: MEROPENEM
     Route: 042
  7. MEROPENEM [Interacting]
     Active Substance: MEROPENEM
     Route: 042
  8. MEROPENEM [Interacting]
     Active Substance: MEROPENEM

REACTIONS (2)
  - Anticonvulsant drug level below therapeutic [Unknown]
  - Drug interaction [Unknown]
